FAERS Safety Report 14953023 (Version 1)
Quarter: 2018Q2

REPORT INFORMATION
  Report Type: Spontaneous
  Country: NZ (occurrence: NZ)
  Receive Date: 20180530
  Receipt Date: 20180530
  Transmission Date: 20180711
  Serious: Yes (Hospitalization)
  Sender: FDA-Public Use
  Company Number: NZ-ELI_LILLY_AND_COMPANY-NZ201805012350

PATIENT
  Age: 43 Year
  Sex: Male

DRUGS (1)
  1. ZYPREXA RELPREVV [Suspect]
     Active Substance: OLANZAPINE PAMOATE
     Indication: PRODUCT USED FOR UNKNOWN INDICATION
     Dosage: UNK, UNKNOWN
     Route: 030

REACTIONS (5)
  - Dysstasia [Unknown]
  - Dysarthria [Unknown]
  - Post-injection delirium sedation syndrome [Unknown]
  - Fatigue [Unknown]
  - Sedation [Unknown]

NARRATIVE: CASE EVENT DATE: 201805
